FAERS Safety Report 7286443-X (Version None)
Quarter: 2011Q1

REPORT INFORMATION
  Report Type: 
  Country: None (occurrence: None)
  Receive Date: 20110210
  Receipt Date: 20110126
  Transmission Date: 20110831
  Serious: Yes (Hospitalization)
  Sender: FDA-Public Use
  Company Number: JP-GENENTECH-310993

PATIENT
  Sex: Female
  Weight: 48 kg

DRUGS (8)
  1. OMALIZUMAB [Suspect]
     Dosage: UNK
     Route: 058
     Dates: start: 20100310
  2. OMALIZUMAB [Suspect]
     Indication: ASTHMA
     Dosage: 225 MG, Q2W
     Route: 058
     Dates: start: 20100210
  3. ONON [Concomitant]
     Indication: PRODUCT USED FOR UNKNOWN INDICATION
     Dosage: UNK
     Dates: start: 20090805
  4. MEPTIN [Concomitant]
     Indication: PRODUCT USED FOR UNKNOWN INDICATION
     Dosage: UNK
     Dates: start: 20090805
  5. CELESTAMINE TAB [Concomitant]
     Indication: PRODUCT USED FOR UNKNOWN INDICATION
     Dosage: UNK
     Dates: start: 20100506
  6. OMALIZUMAB [Suspect]
     Dosage: UNK
     Route: 058
     Dates: start: 20100224
  7. ADVAIR [Concomitant]
     Indication: PRODUCT USED FOR UNKNOWN INDICATION
     Dosage: UNK
     Dates: start: 20090805
  8. TALION (JAPAN) [Concomitant]
     Indication: PRODUCT USED FOR UNKNOWN INDICATION
     Dosage: UNK
     Dates: start: 20100210

REACTIONS (1)
  - ASTHMA [None]
